FAERS Safety Report 6572183-9 (Version None)
Quarter: 2010Q1

REPORT INFORMATION
  Report Type: 
  Country: None (occurrence: None)
  Receive Date: 20100205
  Receipt Date: 20100129
  Transmission Date: 20100710
  Serious: Yes (Hospitalization)
  Sender: FDA-Public Use
  Company Number: B0631410A

PATIENT
  Sex: Female

DRUGS (4)
  1. AUGMENTIN [Suspect]
     Indication: PROPHYLAXIS
     Route: 048
     Dates: start: 20081125, end: 20081125
  2. ATENOLOL [Concomitant]
     Indication: HYPERTENSION
  3. MEDROL [Concomitant]
     Indication: RHEUMATOID ARTHRITIS
  4. UNKNOWN [Concomitant]

REACTIONS (4)
  - DYSPNOEA [None]
  - GENERALISED ERYTHEMA [None]
  - PRURITUS [None]
  - TONGUE OEDEMA [None]
